FAERS Safety Report 21764242 (Version 5)
Quarter: 2024Q4

REPORT INFORMATION
  Report Type: Spontaneous
  Country: CA (occurrence: CA)
  Receive Date: 20221222
  Receipt Date: 20241011
  Transmission Date: 20250115
  Serious: Yes (Death, Life-Threatening, Disabling, Other)
  Sender: AMGEN
  Company Number: CA-AMGEN-CANSP2021049230

PATIENT
  Age: 59 Year
  Sex: Female

DRUGS (171)
  1. ENBREL [Suspect]
     Active Substance: ETANERCEPT
     Indication: Rheumatoid arthritis
     Dosage: 50 MILLIGRAM
     Route: 058
  2. ENBREL [Suspect]
     Active Substance: ETANERCEPT
     Dosage: 50 MILLIGRAM, QWK
     Route: 058
  3. ADALIMUMAB [Suspect]
     Active Substance: ADALIMUMAB
     Indication: Rheumatoid arthritis
     Dosage: UNK
     Route: 065
  4. ADALIMUMAB [Suspect]
     Active Substance: ADALIMUMAB
     Dosage: 40 MILLIGRAM
     Route: 058
  5. RITUXIMAB [Suspect]
     Active Substance: RITUXIMAB
     Indication: Rheumatoid arthritis
     Dosage: UNK
     Route: 065
  6. RITUXIMAB [Suspect]
     Active Substance: RITUXIMAB
     Dosage: UNK
     Route: 058
  7. RITUXIMAB [Suspect]
     Active Substance: RITUXIMAB
     Dosage: UNK
     Route: 040
  8. RITUXIMAB [Suspect]
     Active Substance: RITUXIMAB
     Dosage: UNK (INTRAVENOUS DRIP)
     Route: 065
  9. OTEZLA [Suspect]
     Active Substance: APREMILAST
     Indication: Product used for unknown indication
     Dosage: 6 MILLIGRAM, BID
     Route: 048
  10. OTEZLA [Suspect]
     Active Substance: APREMILAST
     Dosage: 3 MILLIGRAM, BID
     Route: 048
  11. OTEZLA [Suspect]
     Active Substance: APREMILAST
     Dosage: 3 MILLIGRAM
     Route: 048
  12. INFLIXIMAB [Suspect]
     Active Substance: INFLIXIMAB
     Indication: Colitis ulcerative
     Dosage: UNK
     Route: 065
  13. INFLIXIMAB [Suspect]
     Active Substance: INFLIXIMAB
     Indication: Rheumatoid arthritis
     Dosage: UNK
     Route: 042
  14. INFLIXIMAB [Suspect]
     Active Substance: INFLIXIMAB
     Indication: Crohn^s disease
  15. ACETAMINOPHEN [Suspect]
     Active Substance: ACETAMINOPHEN
     Indication: Product used for unknown indication
     Dosage: UNK
     Route: 065
  16. ACTEMRA [Suspect]
     Active Substance: TOCILIZUMAB
     Indication: Rheumatoid arthritis
     Dosage: UNK
     Route: 065
  17. ACTEMRA [Suspect]
     Active Substance: TOCILIZUMAB
     Dosage: UNK
     Route: 016
  18. ACTEMRA [Suspect]
     Active Substance: TOCILIZUMAB
     Dosage: UNK
     Route: 040
  19. ALENDRONATE SODIUM [Suspect]
     Active Substance: ALENDRONATE SODIUM
     Indication: Rheumatoid arthritis
     Dosage: UNK
     Route: 065
  20. ALENDRONATE SODIUM [Suspect]
     Active Substance: ALENDRONATE SODIUM
     Dosage: UNK
     Route: 048
  21. ALENDRONATE SODIUM [Suspect]
     Active Substance: ALENDRONATE SODIUM
     Dosage: UNK
     Route: 065
  22. PREDNISONE [Suspect]
     Active Substance: PREDNISONE
     Indication: Product used for unknown indication
     Dosage: UNK
     Route: 065
  23. PREDNISONE [Suspect]
     Active Substance: PREDNISONE
     Dosage: 40 MILLIGRAM
     Route: 048
  24. ARAVA [Suspect]
     Active Substance: LEFLUNOMIDE
     Indication: Rheumatoid arthritis
     Dosage: UNK
     Route: 065
  25. ARAVA [Suspect]
     Active Substance: LEFLUNOMIDE
     Dosage: 20 MILLIGRAM
     Route: 065
  26. ARAVA [Suspect]
     Active Substance: LEFLUNOMIDE
     Dosage: UNK
     Route: 048
  27. ARAVA [Suspect]
     Active Substance: LEFLUNOMIDE
     Dosage: 20 MILLIGRAM
     Route: 048
  28. CETIRIZINE HYDROCHLORIDE [Suspect]
     Active Substance: CETIRIZINE HYDROCHLORIDE
     Indication: Rheumatoid arthritis
     Dosage: UNK
     Route: 065
  29. CETIRIZINE HYDROCHLORIDE [Suspect]
     Active Substance: CETIRIZINE HYDROCHLORIDE
     Dosage: 10 MILLIGRAM
     Route: 065
  30. CETIRIZINE HYDROCHLORIDE AND PSEUDOEPHEDRINE HYDROCHLORIDE [Suspect]
     Active Substance: CETIRIZINE HYDROCHLORIDE\PSEUDOEPHEDRINE HYDROCHLORIDE
     Indication: Rheumatoid arthritis
     Dosage: UNK
     Route: 065
  31. CIMZIA [Suspect]
     Active Substance: CERTOLIZUMAB PEGOL
     Indication: Rheumatoid arthritis
     Dosage: UNK
     Route: 065
  32. CIMZIA [Suspect]
     Active Substance: CERTOLIZUMAB PEGOL
     Dosage: 400 MILLIGRAM
     Route: 058
  33. CORTISONE ACETATE [Suspect]
     Active Substance: CORTISONE ACETATE
     Indication: Rheumatoid arthritis
     Dosage: 25 MILLIGRAM
     Route: 065
  34. CORTISONE ACETATE [Suspect]
     Active Substance: CORTISONE ACETATE
     Dosage: 25 MILLIGRAM
     Route: 048
  35. CORTISONE ACETATE [Suspect]
     Active Substance: CORTISONE ACETATE
     Dosage: UNK MILLIGRAM
     Route: 065
  36. CORTISONE ACETATE [Suspect]
     Active Substance: CORTISONE ACETATE
     Dosage: UNK MILLIGRAM
     Route: 065
  37. CORTISONE ACETATE [Suspect]
     Active Substance: CORTISONE ACETATE
     Dosage: UNK (ENDOCERVICAL USE)
     Route: 065
  38. CORTISONE ACETATE [Suspect]
     Active Substance: CORTISONE ACETATE
     Dosage: 25 MILLIGRAM
     Route: 061
  39. DICLOFENAC [Suspect]
     Active Substance: DICLOFENAC
     Indication: Product used for unknown indication
     Dosage: UNK
     Route: 065
  40. DIPHENHYDRAMINE HYDROCHLORIDE [Suspect]
     Active Substance: DIPHENHYDRAMINE HYDROCHLORIDE
     Indication: Product used for unknown indication
     Dosage: UNK
     Route: 065
  41. DESOXIMETASONE [Suspect]
     Active Substance: DESOXIMETASONE
     Indication: Rheumatoid arthritis
     Dosage: UNK
     Route: 065
  42. DESOXIMETASONE [Suspect]
     Active Substance: DESOXIMETASONE
     Dosage: UNK
     Route: 061
  43. DESOXIMETASONE [Suspect]
     Active Substance: DESOXIMETASONE
     Dosage: UNK
     Route: 048
  44. DESOXIMETASONE [Suspect]
     Active Substance: DESOXIMETASONE
     Dosage: UNK
     Route: 067
  45. DESOXIMETASONE [Suspect]
     Active Substance: DESOXIMETASONE
     Dosage: UNK
     Route: 058
  46. ERELZI [Suspect]
     Active Substance: ETANERCEPT-SZZS
     Indication: Rheumatoid arthritis
     Dosage: UNK
     Route: 065
  47. ERELZI [Suspect]
     Active Substance: ETANERCEPT-SZZS
     Dosage: UNK
     Route: 058
  48. FOLIC ACID [Suspect]
     Active Substance: FOLIC ACID
     Indication: Rheumatoid arthritis
     Dosage: 5.0 MILLIGRAM
     Route: 065
  49. FOLIC ACID [Suspect]
     Active Substance: FOLIC ACID
     Dosage: 0.5 MILLIGRAM
     Route: 065
  50. FOLIC ACID [Suspect]
     Active Substance: FOLIC ACID
     Dosage: 1.0 MILLIGRAM
     Route: 065
  51. FOLIC ACID [Suspect]
     Active Substance: FOLIC ACID
     Dosage: UNK
     Route: 065
  52. FOLIC ACID [Suspect]
     Active Substance: FOLIC ACID
     Dosage: 25 UNK
     Route: 048
  53. FOLIC ACID [Suspect]
     Active Substance: FOLIC ACID
     Dosage: 50 MILLIGRAM
     Route: 065
  54. FOLIC ACID [Suspect]
     Active Substance: FOLIC ACID
     Dosage: 25 UNK
     Route: 048
  55. FOSAMAX [Suspect]
     Active Substance: ALENDRONATE SODIUM
     Indication: Rheumatoid arthritis
     Dosage: UNK
     Route: 065
  56. FOSAMAX [Suspect]
     Active Substance: ALENDRONATE SODIUM
     Dosage: UNK
     Route: 016
  57. FOSAMAX [Suspect]
     Active Substance: ALENDRONATE SODIUM
     Dosage: UNK
     Route: 048
  58. GOLIMUMAB [Suspect]
     Active Substance: GOLIMUMAB
     Indication: Product used for unknown indication
     Dosage: UNK
     Route: 065
  59. HUMIRA [Suspect]
     Active Substance: ADALIMUMAB
     Indication: Rheumatoid arthritis
     Dosage: 40 MILLIGRAM
     Route: 065
  60. HUMIRA [Suspect]
     Active Substance: ADALIMUMAB
     Dosage: 4 MILLIGRAM
     Route: 065
  61. HUMIRA [Suspect]
     Active Substance: ADALIMUMAB
     Dosage: 40 MILLIGRAM
     Route: 058
  62. HYDROXYCHLOROQUINE [Suspect]
     Active Substance: HYDROXYCHLOROQUINE
     Indication: Rheumatoid arthritis
     Dosage: UNK
     Route: 065
  63. HYDROXYCHLOROQUINE [Suspect]
     Active Substance: HYDROXYCHLOROQUINE
     Dosage: 400 MILLIGRAM, QD
     Route: 065
  64. HYDROXYCHLOROQUINE [Suspect]
     Active Substance: HYDROXYCHLOROQUINE
     Dosage: 400 MILLIGRAM, QD
     Route: 048
  65. HYDROXYCHLOROQUINE [Suspect]
     Active Substance: HYDROXYCHLOROQUINE
     Dosage: 40 MILLIGRAM, QD
     Route: 065
  66. HYDROXYCHLOROQUINE SULFATE [Suspect]
     Active Substance: HYDROXYCHLOROQUINE SULFATE
     Indication: Rheumatoid arthritis
     Dosage: 400 MILLIGRAM
     Route: 065
  67. HYDROXYCHLOROQUINE SULFATE [Suspect]
     Active Substance: HYDROXYCHLOROQUINE SULFATE
     Dosage: UNK
     Route: 065
  68. KEVZARA [Suspect]
     Active Substance: SARILUMAB
     Indication: Rheumatoid arthritis
     Dosage: UNK
     Route: 065
  69. LEFLUNOMIDE [Suspect]
     Active Substance: LEFLUNOMIDE
     Indication: Rheumatoid arthritis
     Dosage: UNK
     Route: 065
  70. METHOTREXATE [Suspect]
     Active Substance: METHOTREXATE
     Indication: Rheumatoid arthritis
     Dosage: UNK
     Route: 065
  71. METHOTREXATE [Suspect]
     Active Substance: METHOTREXATE
     Dosage: 25 MILLIGRAM
     Route: 065
  72. METHOTREXATE [Suspect]
     Active Substance: METHOTREXATE
     Dosage: 20 MILLIGRAM
     Route: 065
  73. METHOTREXATE [Suspect]
     Active Substance: METHOTREXATE
     Dosage: 20 MILLIGRAM, QD
     Route: 065
  74. METHOTREXATE [Suspect]
     Active Substance: METHOTREXATE
     Dosage: 25 MILLIGRAM, QWK
     Route: 058
  75. METHOTREXATE [Suspect]
     Active Substance: METHOTREXATE
     Dosage: 25 MILLIGRAM, QWK
     Route: 048
  76. METHOTREXATE [Suspect]
     Active Substance: METHOTREXATE
     Dosage: UNK
     Route: 016
  77. METHOTREXATE [Suspect]
     Active Substance: METHOTREXATE
     Dosage: 25 MILLIGRAM
     Route: 013
  78. ORENCIA [Suspect]
     Active Substance: ABATACEPT
     Indication: Rheumatoid arthritis
     Dosage: UNK
     Route: 065
  79. ORENCIA [Suspect]
     Active Substance: ABATACEPT
     Dosage: UNK
     Route: 058
  80. ORENCIA [Suspect]
     Active Substance: ABATACEPT
     Dosage: UNK
     Route: 040
  81. PHTHALYLSULFATHIAZOLE [Suspect]
     Active Substance: PHTHALYLSULFATHIAZOLE
     Indication: Rheumatoid arthritis
     Dosage: UNK
     Route: 065
  82. PREDNISONE [Suspect]
     Active Substance: PREDNISONE
     Indication: Product used for unknown indication
     Dosage: UNK
     Route: 065
  83. PREDNISONE [Suspect]
     Active Substance: PREDNISONE
     Dosage: 25 MILLIGRAM
     Route: 065
  84. PREDNISONE [Suspect]
     Active Substance: PREDNISONE
     Dosage: 25 MILLIGRAM
     Route: 048
  85. PREDNISONE [Suspect]
     Active Substance: PREDNISONE
     Dosage: UNK
     Route: 048
  86. PREDNISONE [Suspect]
     Active Substance: PREDNISONE
     Dosage: 40 MILLIGRAM
     Route: 065
  87. PSEUDOEPHEDRINE HYDROCHLORIDE [Suspect]
     Active Substance: PSEUDOEPHEDRINE HYDROCHLORIDE
     Indication: Rheumatoid arthritis
     Dosage: UNK
     Route: 065
  88. PSEUDOEPHEDRINE HYDROCHLORIDE [Suspect]
     Active Substance: PSEUDOEPHEDRINE HYDROCHLORIDE
     Dosage: UNK
     Route: 048
  89. REMICADE [Suspect]
     Active Substance: INFLIXIMAB
     Indication: Rheumatoid arthritis
     Dosage: UNK
     Route: 065
  90. REMICADE [Suspect]
     Active Substance: INFLIXIMAB
     Indication: Colitis ulcerative
     Dosage: UNK
     Route: 040
  91. REMICADE [Suspect]
     Active Substance: INFLIXIMAB
     Dosage: 300 MILLIGRAM
     Route: 040
  92. SIMPONI [Suspect]
     Active Substance: GOLIMUMAB
     Indication: Rheumatoid arthritis
     Dosage: UNK
     Route: 065
  93. SIMPONI [Suspect]
     Active Substance: GOLIMUMAB
     Indication: Product used for unknown indication
     Dosage: UNK
     Route: 058
  94. SIMPONI [Suspect]
     Active Substance: GOLIMUMAB
     Dosage: 50 MILLIGRAM
     Route: 058
  95. SOLU-MEDROL [Suspect]
     Active Substance: METHYLPREDNISOLONE SODIUM SUCCINATE
     Indication: Product used for unknown indication
     Dosage: UNK
     Route: 065
  96. STELARA [Suspect]
     Active Substance: USTEKINUMAB
     Indication: Rheumatoid arthritis
     Dosage: UNK
     Route: 065
  97. STELARA [Suspect]
     Active Substance: USTEKINUMAB
     Dosage: UNK
     Route: 058
  98. SULFASALAZINE [Suspect]
     Active Substance: SULFASALAZINE
     Indication: Rheumatoid arthritis
     Dosage: 500 MILLIGRAM
     Route: 065
  99. SULFASALAZINE [Suspect]
     Active Substance: SULFASALAZINE
     Dosage: 1000 MILLIGRAM
     Route: 065
  100. SULFASALAZINE [Suspect]
     Active Substance: SULFASALAZINE
     Dosage: 500 MILLIGRAM
     Route: 058
  101. SULFASALAZINE [Suspect]
     Active Substance: SULFASALAZINE
     Dosage: 1000 MILLIGRAM, QD
     Route: 048
  102. SULFASALAZINE [Suspect]
     Active Substance: SULFASALAZINE
     Dosage: 500 MILLIGRAM, QD
     Route: 048
  103. TOCILIZUMAB [Suspect]
     Active Substance: TOCILIZUMAB
     Indication: Rheumatoid arthritis
     Dosage: UNK
     Route: 065
  104. TOCILIZUMAB [Suspect]
     Active Substance: TOCILIZUMAB
     Dosage: UNK
     Route: 058
  105. TOCILIZUMAB [Suspect]
     Active Substance: TOCILIZUMAB
     Dosage: UNK
     Route: 016
  106. XELJANZ [Suspect]
     Active Substance: TOFACITINIB CITRATE
     Indication: Rheumatoid arthritis
     Dosage: UNK
     Route: 065
  107. XELJANZ [Suspect]
     Active Substance: TOFACITINIB CITRATE
     Indication: Product used for unknown indication
     Dosage: UNK
     Route: 065
  108. XELJANZ [Suspect]
     Active Substance: TOFACITINIB CITRATE
     Dosage: 5 MILLIGRAM
     Route: 048
  109. XELJANZ [Suspect]
     Active Substance: TOFACITINIB CITRATE
     Dosage: 5 MILLIGRAM, QD
     Route: 048
  110. XELJANZ [Suspect]
     Active Substance: TOFACITINIB CITRATE
     Dosage: 5 MILLIGRAM
     Route: 065
  111. VITAMIN D3 [Suspect]
     Active Substance: CHOLECALCIFEROL
     Indication: Product used for unknown indication
     Dosage: UNK
     Route: 065
  112. ALENDRONIC ACID [Suspect]
     Active Substance: ALENDRONIC ACID
     Indication: Rheumatoid arthritis
     Dosage: UNK
     Route: 048
  113. ALENDRONIC ACID [Suspect]
     Active Substance: ALENDRONIC ACID
     Dosage: UNK
     Route: 065
  114. ALENDRONIC ACID [Suspect]
     Active Substance: ALENDRONIC ACID
     Dosage: UNK
     Route: 016
  115. ASCORBIC ACID [Suspect]
     Active Substance: ASCORBIC ACID
     Indication: Product used for unknown indication
     Route: 065
  116. CALCIUM CARBONATE\CALCIUM GLUCONATE\CALCIUM LACTATE [Suspect]
     Active Substance: CALCIUM CARBONATE\CALCIUM GLUCONATE\CALCIUM LACTATE
     Indication: Product used for unknown indication
     Route: 065
  117. CALCIUM GLUBIONATE [Suspect]
     Active Substance: CALCIUM GLUBIONATE
     Indication: Product used for unknown indication
     Route: 065
  118. CALCIUM GLUCONATE [Suspect]
     Active Substance: CALCIUM GLUCONATE
     Indication: Product used for unknown indication
     Route: 065
  119. CERTOLIZUMAB PEGOL [Suspect]
     Active Substance: CERTOLIZUMAB PEGOL
     Indication: Product used for unknown indication
     Route: 065
  120. COSENTYX [Suspect]
     Active Substance: SECUKINUMAB
     Indication: Product used for unknown indication
     Route: 065
  121. DICLOFENAC POTASSIUM [Suspect]
     Active Substance: DICLOFENAC POTASSIUM
     Indication: Product used for unknown indication
     Route: 065
  122. HYDROCORTISONE ACETATE [Suspect]
     Active Substance: HYDROCORTISONE ACETATE
     Indication: Product used for unknown indication
     Dosage: 25 MILLIGRAM
     Route: 048
  123. HYDROCORTISONE ACETATE [Suspect]
     Active Substance: HYDROCORTISONE ACETATE
     Dosage: 25 MILLIGRAM
     Route: 061
  124. CETIRIZINE HYDROCHLORIDE\PSEUDOEPHEDRINE HYDROCHLORIDE [Suspect]
     Active Substance: CETIRIZINE HYDROCHLORIDE\PSEUDOEPHEDRINE HYDROCHLORIDE
     Indication: Rheumatoid arthritis
     Route: 065
  125. CETIRIZINE HYDROCHLORIDE\PSEUDOEPHEDRINE HYDROCHLORIDE [Suspect]
     Active Substance: CETIRIZINE HYDROCHLORIDE\PSEUDOEPHEDRINE HYDROCHLORIDE
     Indication: Off label use
  126. DIETARY SUPPLEMENT [Suspect]
     Active Substance: DIETARY SUPPLEMENT
     Indication: Product used for unknown indication
     Route: 065
  127. PREDNISONE [Suspect]
     Active Substance: PREDNISONE
     Indication: Rheumatoid arthritis
     Route: 048
  128. HYDROCORTISONE [Suspect]
     Active Substance: HYDROCORTISONE
     Indication: Product used for unknown indication
     Route: 048
  129. METHYLPREDNISOLONE SODIUM SUCCINATE [Suspect]
     Active Substance: METHYLPREDNISOLONE SODIUM SUCCINATE
     Indication: Product used for unknown indication
     Dosage: UNK
     Route: 065
  130. USTEKINUMAB [Suspect]
     Active Substance: USTEKINUMAB
     Indication: Rheumatoid arthritis
     Dosage: UNK
     Route: 058
  131. USTEKINUMAB [Suspect]
     Active Substance: USTEKINUMAB
     Dosage: UNK
     Route: 065
  132. RAMIPRIL [Suspect]
     Active Substance: RAMIPRIL
     Indication: Product used for unknown indication
     Dosage: UNK
     Route: 065
  133. TOFACITINIB CITRATE [Suspect]
     Active Substance: TOFACITINIB CITRATE
     Indication: Rheumatoid arthritis
     Dosage: 5 MILLIGRAM, QWK
     Route: 048
  134. QUETIAPINE FUMARATE [Concomitant]
     Active Substance: QUETIAPINE FUMARATE
     Indication: Product used for unknown indication
  135. PANTOPRAZOLE SODIUM [Concomitant]
     Active Substance: PANTOPRAZOLE SODIUM
  136. CAFFEINE CITRATE [Concomitant]
     Active Substance: CAFFEINE CITRATE
     Indication: Product used for unknown indication
     Dosage: UNK
     Route: 065
  137. IBUPROFEN [Concomitant]
     Active Substance: IBUPROFEN
     Indication: Product used for unknown indication
     Dosage: UNK
     Route: 065
  138. SULFASALAZINE [Concomitant]
     Active Substance: SULFASALAZINE
     Indication: Rheumatoid arthritis
     Dosage: UNK
     Route: 065
  139. SULFASALAZINE [Concomitant]
     Active Substance: SULFASALAZINE
     Dosage: 1 GRAM, BID
     Route: 048
  140. LISINOPRIL [Concomitant]
     Active Substance: LISINOPRIL
     Indication: Product used for unknown indication
     Dosage: UNK
     Route: 065
  141. CODEINE [Concomitant]
     Active Substance: CODEINE
     Indication: Product used for unknown indication
     Dosage: UNK
     Route: 065
  142. ASACOL [Suspect]
     Active Substance: MESALAMINE
     Indication: Rheumatoid arthritis
     Dosage: UNK
     Route: 065
  143. ASACOL [Suspect]
     Active Substance: MESALAMINE
     Indication: Crohn^s disease
     Dosage: UNK
     Route: 065
  144. AZATHIOPRINE [Suspect]
     Active Substance: AZATHIOPRINE
     Indication: Product used for unknown indication
     Dosage: UNK
     Route: 065
  145. BUPROPION [Concomitant]
     Active Substance: BUPROPION
     Indication: Product used for unknown indication
  146. DOXYCYCLINE [Suspect]
     Active Substance: DOXYCYCLINE
     Indication: Product used for unknown indication
     Dosage: UNK
     Route: 065
  147. ERGOCALCIFEROL [Suspect]
     Active Substance: ERGOCALCIFEROL
     Indication: Product used for unknown indication
     Route: 065
  148. ISOPROPYL ALCOHOL [Suspect]
     Active Substance: ISOPROPYL ALCOHOL
     Indication: Product used for unknown indication
     Dosage: UNK
     Route: 061
  149. LEVOCETIRIZINE HYDROCHLORIDE [Suspect]
     Active Substance: LEVOCETIRIZINE HYDROCHLORIDE
     Indication: Rheumatoid arthritis
     Dosage: UNK
     Route: 065
  150. METHYLPREDNISOLONE SODIUM SUCCINATE [Suspect]
     Active Substance: METHYLPREDNISOLONE SODIUM SUCCINATE
     Indication: Product used for unknown indication
     Dosage: UNK
     Route: 065
  151. MINOCYCLINE [Suspect]
     Active Substance: MINOCYCLINE HYDROCHLORIDE
     Indication: Product used for unknown indication
     Dosage: 400 MILLIGRAM, QD
     Route: 065
  152. MINOCYCLINE [Suspect]
     Active Substance: MINOCYCLINE HYDROCHLORIDE
     Dosage: UNK
     Route: 065
  153. MINOCYCLINE HYDROCHLORIDE [Suspect]
     Active Substance: MINOCYCLINE HYDROCHLORIDE
     Indication: Product used for unknown indication
     Dosage: UNK
     Route: 065
  154. MORPHINE SULFATE [Suspect]
     Active Substance: MORPHINE SULFATE
     Indication: Product used for unknown indication
     Dosage: UNK
     Route: 065
  155. OXYCODONE HYDROCHLORIDE [Suspect]
     Active Substance: OXYCODONE HYDROCHLORIDE
     Indication: Product used for unknown indication
     Dosage: UNK
     Route: 065
  156. OXYCODONE TEREPHTHALATE [Suspect]
     Active Substance: OXYCODONE TEREPHTHALATE
     Indication: Product used for unknown indication
     Dosage: UNK
     Route: 065
  157. PANTOPRAZOLE [Suspect]
     Active Substance: PANTOPRAZOLE
     Indication: Product used for unknown indication
     Dosage: UNK
     Route: 065
  158. PANTOPRAZOLE SODIUM [Concomitant]
     Active Substance: PANTOPRAZOLE SODIUM
     Indication: Product used for unknown indication
     Dosage: UNK
  159. PHENYLEPHRINE HYDROCHLORIDE [Suspect]
     Active Substance: PHENYLEPHRINE HYDROCHLORIDE
     Indication: Rheumatoid arthritis
     Dosage: UNK
     Route: 065
  160. SIRUKUMAB [Suspect]
     Active Substance: SIRUKUMAB
     Indication: Product used for unknown indication
     Dosage: UNK
     Route: 065
  161. TUMS [Suspect]
     Active Substance: CALCIUM CARBONATE
     Indication: Product used for unknown indication
     Dosage: UNK
     Route: 065
  162. VITAMIN C [Suspect]
     Active Substance: ASCORBIC ACID
     Indication: Product used for unknown indication
     Dosage: UNK
     Route: 065
  163. ACETAMINOPHEN AND CODEINE [Concomitant]
     Active Substance: ACETAMINOPHEN\CODEINE PHOSPHATE
     Indication: Product used for unknown indication
  164. BUPROPION HYDROCHLORIDE [Concomitant]
     Active Substance: BUPROPION HYDROCHLORIDE
     Indication: Product used for unknown indication
  165. DOCONEXENT [Concomitant]
     Active Substance: DOCONEXENT
     Indication: Product used for unknown indication
  166. HYDROMORPHONE HYDROCHLORIDE [Concomitant]
     Active Substance: HYDROMORPHONE HYDROCHLORIDE
     Indication: Product used for unknown indication
     Route: 030
  167. HYDROMORPHONE HYDROCHLORIDE [Concomitant]
     Active Substance: HYDROMORPHONE HYDROCHLORIDE
     Route: 065
  168. LANSOPRAZOLE [Concomitant]
     Active Substance: LANSOPRAZOLE
     Indication: Product used for unknown indication
  169. LORAZEPAM [Concomitant]
     Active Substance: LORAZEPAM
     Indication: Product used for unknown indication
  170. TYLENOL [Concomitant]
     Active Substance: ACETAMINOPHEN
     Indication: Product used for unknown indication
  171. WELLBUTRIN [Concomitant]
     Active Substance: BUPROPION HYDROCHLORIDE
     Indication: Product used for unknown indication

REACTIONS (65)
  - Abdominal discomfort [Fatal]
  - Adverse drug reaction [Fatal]
  - Adverse event [Fatal]
  - Alopecia [Fatal]
  - Anti-cyclic citrullinated peptide antibody [Fatal]
  - Anti-cyclic citrullinated peptide antibody positive [Fatal]
  - Anxiety [Not Recovered/Not Resolved]
  - Arthralgia [Fatal]
  - Arthropathy [Fatal]
  - Asthma [Not Recovered/Not Resolved]
  - Blister [Fatal]
  - Blood cholesterol increased [Fatal]
  - Contraindicated product administered [Fatal]
  - Decreased appetite [Fatal]
  - Diarrhoea [Fatal]
  - Discomfort [Fatal]
  - Drug ineffective [Fatal]
  - Drug intolerance [Fatal]
  - Duodenal ulcer perforation [Fatal]
  - Exposure during pregnancy [Fatal]
  - Fatigue [Fatal]
  - Fibromyalgia [Fatal]
  - General physical health deterioration [Fatal]
  - Glossodynia [Fatal]
  - Hand deformity [Fatal]
  - Headache [Fatal]
  - Helicobacter infection [Fatal]
  - Hepatic enzyme increased [Fatal]
  - Hypercholesterolaemia [Fatal]
  - Hypersensitivity [Fatal]
  - Hypertension [Fatal]
  - Hypoaesthesia [Fatal]
  - Infusion related reaction [Fatal]
  - Injury [Fatal]
  - Intentional product use issue [Not Recovered/Not Resolved]
  - Joint swelling [Fatal]
  - Liver injury [Fatal]
  - Lupus vulgaris [Not Recovered/Not Resolved]
  - Malaise [Fatal]
  - Maternal exposure during pregnancy [Fatal]
  - Mobility decreased [Fatal]
  - Musculoskeletal stiffness [Fatal]
  - Musculoskeletal stiffness [Not Recovered/Not Resolved]
  - Oedema peripheral [Not Recovered/Not Resolved]
  - Off label use [Fatal]
  - Pain [Fatal]
  - Pain in extremity [Not Recovered/Not Resolved]
  - Pemphigus [Fatal]
  - Pericarditis [Fatal]
  - Product use in unapproved indication [Not Recovered/Not Resolved]
  - Product use issue [Fatal]
  - Psoriatic arthropathy [Fatal]
  - Rash [Fatal]
  - Red blood cell sedimentation rate increased [Not Recovered/Not Resolved]
  - Retinitis [Not Recovered/Not Resolved]
  - Rheumatic fever [Fatal]
  - Rheumatoid arthritis [Fatal]
  - Rheumatoid factor positive [Fatal]
  - Systemic lupus erythematosus [Fatal]
  - Therapeutic product effect decreased [Fatal]
  - Therapeutic product effect incomplete [Not Recovered/Not Resolved]
  - Treatment failure [Fatal]
  - Type 2 diabetes mellitus [Fatal]
  - Visual impairment [Not Recovered/Not Resolved]
  - Wound [Fatal]
